FAERS Safety Report 8805338 (Version 2)
Quarter: 2015Q2

REPORT INFORMATION
  Report Type: Report from Study
  Country: US (occurrence: US)
  Receive Date: 20120924
  Receipt Date: 20150401
  Transmission Date: 20150821
  Serious: Yes (Death)
  Sender: FDA-Public Use
  Company Number: US-ROCHE-1127081

PATIENT
  Sex: Male

DRUGS (6)
  1. IRINOTECAN [Concomitant]
     Active Substance: IRINOTECAN
     Route: 065
  2. KEPPRA [Concomitant]
     Active Substance: LEVETIRACETAM
     Route: 065
  3. DECADRON [Concomitant]
     Active Substance: DEXAMETHASONE
  4. AVASTIN [Suspect]
     Active Substance: BEVACIZUMAB
     Indication: BRAIN NEOPLASM MALIGNANT
     Route: 042
     Dates: start: 20070504
  5. ZOFRAN [Concomitant]
     Active Substance: ONDANSETRON HYDROCHLORIDE
  6. ATIVAN [Concomitant]
     Active Substance: LORAZEPAM

REACTIONS (8)
  - Decreased appetite [Unknown]
  - Disease progression [Fatal]
  - Vomiting [Recovered/Resolved]
  - Hemianopia homonymous [Unknown]
  - Depression [Unknown]
  - Fatigue [Unknown]
  - Nausea [Recovered/Resolved]
  - Headache [Unknown]
